FAERS Safety Report 14973911 (Version 1)
Quarter: 2018Q2

REPORT INFORMATION
  Report Type: Spontaneous
  Country: US (occurrence: US)
  Receive Date: 20180514
  Receipt Date: 20180514
  Transmission Date: 20180711
  Serious: Yes (Death, Hospitalization)
  Sender: FDA-Public Use
  Company Number: None

PATIENT
  Age: 72 Year
  Sex: Female
  Weight: 60.5 kg

DRUGS (2)
  1. RIVAROXABAN [Suspect]
     Active Substance: RIVAROXABAN
     Indication: PULMONARY EMBOLISM
     Route: 048
     Dates: start: 20171025, end: 20180426
  2. ASPIRIN 81 MG DAILY [Concomitant]
     Dates: end: 20180426

REACTIONS (7)
  - Pupil fixed [None]
  - Seizure [None]
  - Brain death [None]
  - Unresponsive to stimuli [None]
  - Subarachnoid haemorrhage [None]
  - Areflexia [None]
  - Brain oedema [None]

NARRATIVE: CASE EVENT DATE: 20180425
